FAERS Safety Report 11904271 (Version 1)
Quarter: 2016Q1

REPORT INFORMATION
  Report Type: Spontaneous
  Country: US (occurrence: US)
  Receive Date: 20160108
  Receipt Date: 20160108
  Transmission Date: 20160526
  Serious: No
  Sender: FDA-Public Use
  Company Number: US-ROCHE-1584647

PATIENT
  Age: 61 Year
  Sex: Female

DRUGS (3)
  1. WESTHROID [Concomitant]
     Active Substance: THYROGLOBULIN
  2. HUMIRA [Concomitant]
     Active Substance: ADALIMUMAB
  3. RITUXAN [Suspect]
     Active Substance: RITUXIMAB
     Indication: RHEUMATOID ARTHRITIS
     Dosage: MOST RECENT DOSE OF RITUXAN  /DEC/2014
     Route: 042
     Dates: start: 201406

REACTIONS (3)
  - Back pain [Not Recovered/Not Resolved]
  - Constipation [Not Recovered/Not Resolved]
  - Abdominal distension [Not Recovered/Not Resolved]

NARRATIVE: CASE EVENT DATE: 201501
